FAERS Safety Report 22383297 (Version 1)
Quarter: 2023Q2

REPORT INFORMATION
  Report Type: Spontaneous
  Country: US (occurrence: None)
  Receive Date: 20230526
  Receipt Date: 20230526
  Transmission Date: 20230722
  Serious: Yes (Other)
  Sender: FDA-Public Use
  Company Number: None

PATIENT
  Age: 38 Year
  Sex: Female
  Weight: 60.75 kg

DRUGS (14)
  1. VYVANSE [Suspect]
     Active Substance: LISDEXAMFETAMINE DIMESYLATE
     Indication: Hypersomnia
     Route: 048
     Dates: start: 20230323
  2. VYVANSE [Suspect]
     Active Substance: LISDEXAMFETAMINE DIMESYLATE
     Indication: Attention deficit hyperactivity disorder
  3. ALPRAZOLAM [Concomitant]
     Active Substance: ALPRAZOLAM
  4. PROPANOL (PROPRANOLOL HYDROCHLORIDE) [Concomitant]
     Active Substance: PROPRANOLOL HYDROCHLORIDE
  5. Tretoninoin [Concomitant]
  6. SODIUM FLUORIDE [Concomitant]
     Active Substance: SODIUM FLUORIDE
  7. VENTOLIN HFA [Concomitant]
     Active Substance: ALBUTEROL SULFATE
  8. HERBALS\WITHANIA SOMNIFERA ROOT [Concomitant]
     Active Substance: HERBALS\WITHANIA SOMNIFERA ROOT
  9. VITAMIN B COMPLEX [Concomitant]
     Active Substance: CYANOCOBALAMIN\DEXPANTHENOL\NIACINAMIDE\PYRIDOXINE HYDROCHLORIDE\RIBOFLAVIN 5^-PHOSPHATE SODIUM\THIA
  10. Cortisol Manager [Concomitant]
  11. Vitamind D [Concomitant]
  12. LAVENDER OIL [Concomitant]
  13. CANNABIDIOL [Concomitant]
     Active Substance: CANNABIDIOL
  14. IRON [Concomitant]
     Active Substance: IRON

REACTIONS (3)
  - Dizziness [None]
  - Dry mouth [None]
  - Alopecia [None]

NARRATIVE: CASE EVENT DATE: 20230401
